FAERS Safety Report 9284989 (Version 9)
Quarter: 2014Q1

REPORT INFORMATION
  Report Type: Report from Study
  Country: CA (occurrence: CA)
  Receive Date: 20130513
  Receipt Date: 20140117
  Transmission Date: 20141002
  Serious: Yes (Hospitalization, Other)
  Sender: FDA-Public Use
  Company Number: PHHY2013CA013844

PATIENT
  Age: 70 Year
  Sex: Male

DRUGS (6)
  1. SANDOSTATIN LAR [Suspect]
     Indication: UTERINE FISTULA
     Dosage: 20 MG, ONCE A MONTH
     Route: 030
     Dates: start: 20121218
  2. SANDOSTATIN LAR [Suspect]
     Dosage: 30 MG, EVERY 4 WEEKS
     Route: 030
  3. SANDOSTATIN LAR [Suspect]
     Dosage: 20 MG, QMO
     Route: 030
  4. SANDOSTATIN [Suspect]
     Indication: UTERINE FISTULA
     Dosage: 100 UG, TID
     Route: 058
     Dates: start: 201212
  5. CHEMOTHERAPEUTICS [Concomitant]
     Dosage: UNK UKN, UNK
  6. CHEMOTHERAPEUTICS [Concomitant]
     Dosage: UNK UKN, UNK

REACTIONS (16)
  - Pyrexia [Recovering/Resolving]
  - Haemorrhage [Unknown]
  - Infection [Unknown]
  - Platelet count decreased [Not Recovered/Not Resolved]
  - Blood pressure increased [Unknown]
  - Anaemia [Unknown]
  - Haemoglobin decreased [Unknown]
  - Crohn^s disease [Unknown]
  - Oral herpes [Unknown]
  - Weight decreased [Unknown]
  - Fistula [Unknown]
  - Respiratory rate increased [Unknown]
  - Dyspnoea [Unknown]
  - Nausea [Unknown]
  - Vomiting [Unknown]
  - Asthenia [Unknown]
